FAERS Safety Report 7047434-7 (Version None)
Quarter: 2010Q4

REPORT INFORMATION
  Report Type: 
  Country: None (occurrence: None)
  Receive Date: 20101015
  Receipt Date: 20101012
  Transmission Date: 20110411
  Serious: Yes (Hospitalization)
  Sender: FDA-Public Use
  Company Number: FR-ROCHE-733280

PATIENT
  Sex: Female

DRUGS (9)
  1. RIVOTRIL [Suspect]
     Indication: PRODUCT USED FOR UNKNOWN INDICATION
     Route: 048
     Dates: start: 20090901, end: 20091101
  2. NEURONTIN [Suspect]
     Indication: OPTIC NEUROPATHY
     Route: 048
     Dates: start: 19960101
  3. TOPIRAMATE [Suspect]
     Indication: OPTIC NEUROPATHY
     Route: 048
     Dates: start: 20000101
  4. URBANYL [Suspect]
     Indication: PRODUCT USED FOR UNKNOWN INDICATION
     Route: 048
     Dates: start: 20000101, end: 20090101
  5. VIMPAT [Suspect]
     Indication: OPTIC NEUROPATHY
     Dosage: STRNGTH:100 MG
     Route: 048
     Dates: start: 20091101, end: 20100528
  6. VIMPAT [Suspect]
     Dosage: STRNGTH:50 MG
     Route: 048
     Dates: start: 20100705
  7. TEGRETOL [Suspect]
     Indication: PRODUCT USED FOR UNKNOWN INDICATION
     Route: 048
     Dates: start: 19960101, end: 20000101
  8. LAMICTAL [Suspect]
     Indication: PRODUCT USED FOR UNKNOWN INDICATION
     Route: 048
     Dates: start: 19960101, end: 19990101
  9. TEGELINE [Suspect]
     Indication: PRODUCT USED FOR UNKNOWN INDICATION
     Dosage: FORM:POWDER AND SOLUTION FOR INFUSION, STRENGTH:10 G/200 ML
     Route: 042
     Dates: start: 20030101

REACTIONS (1)
  - OPTIC NEUROPATHY [None]
